FAERS Safety Report 18665522 (Version 7)
Quarter: 2021Q1

REPORT INFORMATION
  Report Type: Spontaneous
  Country: US (occurrence: US)
  Receive Date: 20201226
  Receipt Date: 20210225
  Transmission Date: 20210419
  Serious: Yes (Other)
  Sender: FDA-Public Use
  Company Number: US-ROCHE-2710815

PATIENT
  Age: 52 Year
  Sex: Female

DRUGS (2)
  1. XELODA [Suspect]
     Active Substance: CAPECITABINE
     Indication: BREAST CANCER FEMALE
     Route: 048
  2. TUKYSA [Suspect]
     Active Substance: TUCATINIB
     Indication: BREAST CANCER FEMALE
     Dosage: ONGOING: NO
     Route: 065

REACTIONS (17)
  - Dyspnoea [Unknown]
  - Intentional product misuse [Unknown]
  - Illness [Unknown]
  - Cough [Unknown]
  - Sneezing [Unknown]
  - Feeling abnormal [Unknown]
  - Breast pain [Unknown]
  - Hypersomnia [Unknown]
  - Nausea [Unknown]
  - Rash [Unknown]
  - Anxiety [Unknown]
  - Feeling hot [Unknown]
  - Osteonecrosis of jaw [Unknown]
  - Cold sweat [Unknown]
  - Retching [Unknown]
  - Vomiting [Recovered/Resolved]
  - Malaise [Unknown]
